FAERS Safety Report 8673599 (Version 2)
Quarter: 2012Q4

REPORT INFORMATION
  Report Type: 
  Country: US (occurrence: US)
  Receive Date: 20120719
  Receipt Date: 20121019
  Transmission Date: 20130627
  Serious: Yes (Hospitalization)
  Sender: FDA-Public Use
  Company Number: US-BRISTOL-MYERS SQUIBB COMPANY-16640559

PATIENT
  Age: 39 Year
  Sex: Female

DRUGS (9)
  1. YERVOY [Suspect]
     Indication: METASTATIC MALIGNANT MELANOMA
     Dosage: course 3, 3mg/kg, therapy duration: 11/2 months
     Route: 042
     Dates: start: 20120314, end: 20120501
  2. CYMBALTA [Concomitant]
  3. LORAZEPAM [Concomitant]
  4. VYTORIN [Concomitant]
  5. NEURONTIN [Concomitant]
     Route: 048
  6. PROTONIX [Concomitant]
     Route: 048
  7. LASIX [Concomitant]
     Route: 048
  8. DIFLUCAN [Concomitant]
     Dosage: 1 tab
     Route: 048
  9. PREDNISONE [Concomitant]
     Route: 048

REACTIONS (2)
  - Dermatitis [Recovering/Resolving]
  - Colitis [Recovering/Resolving]
